FAERS Safety Report 11224320 (Version 1)
Quarter: 2015Q2

REPORT INFORMATION
  Report Type: Spontaneous
  Country: US (occurrence: None)
  Receive Date: 20150626
  Receipt Date: 20150626
  Transmission Date: 20150821
  Serious: Yes (Hospitalization)
  Sender: FDA-Public Use
  Company Number: None

PATIENT
  Sex: Female
  Weight: 60.5 kg

DRUGS (24)
  1. HARVONI [Suspect]
     Active Substance: LEDIPASVIR\SOFOSBUVIR
     Indication: HEPATITIS C
     Dosage: 90/400 MG, 1X/DAY, PO
     Route: 048
     Dates: start: 20150122, end: 20150417
  2. TORSEMIDE. [Concomitant]
     Active Substance: TORSEMIDE
  3. CRANBERRY. [Concomitant]
     Active Substance: CRANBERRY
  4. BACLOFEN. [Concomitant]
     Active Substance: BACLOFEN
  5. OLOPATADINE [Concomitant]
     Active Substance: OLOPATADINE
  6. FENTANYL. [Concomitant]
     Active Substance: FENTANYL
  7. MAGNESIUM [Concomitant]
     Active Substance: MAGNESIUM
  8. ZINC [Concomitant]
     Active Substance: ZINC\ZINC CHLORIDE
  9. ONDANSETRON [Suspect]
     Active Substance: ONDANSETRON
  10. FLAXSEED [Concomitant]
     Active Substance: FLAX SEED
  11. LECITHIN [Concomitant]
     Active Substance: LECITHIN
  12. PROMETHAZINE [Concomitant]
     Active Substance: PROMETHAZINE\PROMETHAZINE HYDROCHLORIDE
  13. CHOLECALCIFEROL [Concomitant]
     Active Substance: CHOLECALCIFEROL
  14. PROPRANOLOL [Concomitant]
     Active Substance: PROPRANOLOL\PROPRANOLOL HYDROCHLORIDE
  15. LEVOTHYROXINE [Concomitant]
     Active Substance: LEVOTHYROXINE
  16. DULOXETINE [Concomitant]
     Active Substance: DULOXETINE
  17. TUMS [Concomitant]
     Active Substance: CALCIUM CARBONATE
  18. LACTULOSE. [Concomitant]
     Active Substance: LACTULOSE
  19. RANITIDINE [Concomitant]
     Active Substance: RANITIDINE\RANITIDINE HYDROCHLORIDE
  20. OXYCODONE [Concomitant]
     Active Substance: OXYCODONE
  21. GLUCOSAMINE - CHONDROITIN [Concomitant]
  22. REMERON [Concomitant]
     Active Substance: MIRTAZAPINE
  23. KLOR-CON [Concomitant]
     Active Substance: POTASSIUM CHLORIDE
  24. MULTIPLE VITAMIN [Concomitant]
     Active Substance: VITAMINS

REACTIONS (3)
  - Fall [None]
  - Confusional state [None]
  - Drug dose omission [None]

NARRATIVE: CASE EVENT DATE: 20150212
